FAERS Safety Report 5921926-3 (Version None)
Quarter: 2008Q4

REPORT INFORMATION
  Report Type: 
  Country: None (occurrence: None)
  Receive Date: 20081014
  Receipt Date: 20081003
  Transmission Date: 20090506
  Serious: Yes (Hospitalization)
  Sender: FDA-Public Use
  Company Number: 2008BI021134

PATIENT
  Age: 52 Year
  Sex: Female

DRUGS (3)
  1. AVONEX [Suspect]
     Indication: MULTIPLE SCLEROSIS
     Dosage: 30 UG; QW; IM, 30 UG; IM, 30 UG; QW; IM
     Route: 030
     Dates: start: 20021121, end: 20030101
  2. AVONEX [Suspect]
     Indication: MULTIPLE SCLEROSIS
     Dosage: 30 UG; QW; IM, 30 UG; IM, 30 UG; QW; IM
     Route: 030
     Dates: start: 20030101, end: 20030101
  3. AVONEX [Suspect]
     Indication: MULTIPLE SCLEROSIS
     Dosage: 30 UG; QW; IM, 30 UG; IM, 30 UG; QW; IM
     Route: 030
     Dates: start: 20030101

REACTIONS (6)
  - ASPIRATION [None]
  - CONDITION AGGRAVATED [None]
  - KIDNEY INFECTION [None]
  - MULTIPLE SCLEROSIS [None]
  - PNEUMONIA [None]
  - VISION BLURRED [None]
